FAERS Safety Report 7926725-9 (Version None)
Quarter: 2011Q4

REPORT INFORMATION
  Report Type: 
  Country: None (occurrence: None)
  Receive Date: 20111118
  Receipt Date: 20111108
  Transmission Date: 20120403
  Serious: Yes (Hospitalization)
  Sender: FDA-Public Use
  Company Number: US-JNJFOC-20111103610

PATIENT
  Sex: Male
  Weight: 74.39 kg

DRUGS (5)
  1. HYDROCODONE BITARTRATE [Concomitant]
     Indication: PRODUCT USED FOR UNKNOWN INDICATION
     Route: 065
  2. VICODIN [Concomitant]
     Indication: PAIN
     Dosage: 1-2 TABLETS AS NEEDED
     Route: 048
  3. REMICADE [Suspect]
     Indication: PRODUCT USED FOR UNKNOWN INDICATION
     Route: 042
  4. LORAZEPAM [Concomitant]
     Indication: PRODUCT USED FOR UNKNOWN INDICATION
     Route: 065
  5. HUMIRA [Suspect]
     Indication: CROHN'S DISEASE
     Dosage: 40MG/0.8ML PEN
     Route: 058

REACTIONS (5)
  - NASOPHARYNGITIS [None]
  - COLECTOMY [None]
  - ABSCESS INTESTINAL [None]
  - WOUND COMPLICATION [None]
  - INCISIONAL HERNIA [None]
